FAERS Safety Report 4276300-5 (Version None)
Quarter: 2004Q1

REPORT INFORMATION
  Report Type: 
  Country: None (occurrence: None)
  Receive Date: 20040116
  Receipt Date: 20040105
  Transmission Date: 20041129
  Serious: Yes (Death)
  Sender: FDA-Public Use
  Company Number: KDL034305

PATIENT
  Age: 63 Year
  Sex: Female

DRUGS (2)
  1. PROCRIT [Suspect]
     Indication: ANAEMIA OF MALIGNANT DISEASE
     Dosage: 1000 U, WEEKLY, SC
     Route: 058
     Dates: start: 20021231, end: 20030113
  2. VINORELBINE [Concomitant]

REACTIONS (1)
  - THERAPEUTIC RESPONSE DELAYED [None]
